FAERS Safety Report 7460859-0 (Version None)
Quarter: 2011Q2

REPORT INFORMATION
  Report Type: 
  Country: None (occurrence: None)
  Receive Date: 20110505
  Receipt Date: 20110427
  Transmission Date: 20111010
  Serious: Yes (Hospitalization)
  Sender: FDA-Public Use
  Company Number: FR-PFIZER INC-2011090422

PATIENT
  Age: 39 Year
  Sex: Male

DRUGS (16)
  1. CELLCEPT [Concomitant]
     Dosage: 1 G, 1X/DAY
  2. CLERIDIUM [Concomitant]
     Dosage: 2 CAPSULES DAILY
  3. ROVALCYTE [Concomitant]
     Dosage: 450 MG, 1X/DAY
  4. MOTILIUM [Concomitant]
     Dosage: 2 CAPSULES DAILY
  5. TARDYFERON [Concomitant]
     Dosage: 2 CAPSULES DAILY
  6. SOLU-MEDROL [Suspect]
     Dosage: 500 MG, 1X/DAY
     Route: 042
     Dates: start: 20050420
  7. CORTANCYL [Suspect]
     Indication: IMMUNOSUPPRESSANT DRUG THERAPY
     Dosage: 10 MG, 1X/DAY
     Route: 048
     Dates: start: 20050420
  8. NEXIUM [Concomitant]
     Dosage: 40 MG, 1X/DAY
  9. NEORECORMAN [Concomitant]
     Dosage: 3000 IU, 3 TIMES PER WEEK
  10. BISOPROLOL FUMARATE [Concomitant]
     Dosage: 10 MG, 1X/DAY
  11. ASPEGIC 325 [Concomitant]
     Dosage: 100 MG, 1X/DAY
  12. DISCOTRINE [Concomitant]
     Dosage: 10 MG, 1X/DAY
  13. SIROLIMUS [Suspect]
     Indication: IMMUNOSUPPRESSANT DRUG THERAPY
     Dosage: 5 MG, 1X/DAY
     Route: 048
     Dates: start: 20050427, end: 20050521
  14. SIROLIMUS [Suspect]
     Dosage: 4 MG, UNK
     Route: 048
     Dates: start: 20050522, end: 20050523
  15. SIROLIMUS [Suspect]
     Dosage: 2 MG, UNK
     Route: 048
     Dates: start: 20050524, end: 20050607
  16. TAHOR [Concomitant]
     Dosage: 10 MG, 1X/DAY

REACTIONS (7)
  - STREPTOCOCCAL SEPSIS [None]
  - PERIPANCREATIC FLUID COLLECTION [None]
  - PORTAL VEIN THROMBOSIS [None]
  - DUODENAL FISTULA [None]
  - SEPTIC SHOCK [None]
  - PYELONEPHRITIS ACUTE [None]
  - HAEMATOMA INFECTION [None]
